FAERS Safety Report 15754473 (Version 1)
Quarter: 2018Q4

REPORT INFORMATION
  Report Type: Spontaneous
  Country: CH (occurrence: CH)
  Receive Date: 20181224
  Receipt Date: 20181224
  Transmission Date: 20190205
  Serious: Yes (Disabling)
  Sender: FDA-Public Use
  Company Number: CH-TEVA-2018-CH-989998

PATIENT
  Age: 58 Year
  Sex: Female

DRUGS (29)
  1. DAFALGAN [Interacting]
     Active Substance: ACETAMINOPHEN
     Dosage: 4 GRAM DAILY;
     Route: 048
     Dates: start: 20181122, end: 20181128
  2. ZINACEF [Concomitant]
     Active Substance: CEFUROXIME SODIUM
     Route: 065
     Dates: start: 20181122, end: 20181122
  3. LIDOCAINE. [Concomitant]
     Active Substance: LIDOCAINE
     Route: 065
     Dates: start: 20181122, end: 20181122
  4. VERDYE [Concomitant]
     Route: 065
     Dates: start: 20181122
  5. TEMGESIC [Interacting]
     Active Substance: BUPRENORPHINE HYDROCHLORIDE
     Dosage: MAX 3X/D ; AS NECESSARY
     Route: 060
     Dates: start: 20181124, end: 20181126
  6. PURSANA [Concomitant]
     Active Substance: FIG FRUIT OIL\SORBITOL
     Dates: end: 20181128
  7. ESMERON [Concomitant]
     Active Substance: ROCURONIUM BROMIDE
     Route: 065
     Dates: start: 20181122, end: 20181122
  8. METRONIDAZOLE. [Suspect]
     Active Substance: METRONIDAZOLE
     Route: 042
     Dates: start: 20181122, end: 20181122
  9. TORADOL [Suspect]
     Active Substance: KETOROLAC TROMETHAMINE
     Dosage: IN TOTAL
     Route: 042
     Dates: start: 20181122, end: 20181122
  10. PERFALGAN [Interacting]
     Active Substance: ACETAMINOPHEN
     Dosage: IN TOTAL
     Route: 042
     Dates: start: 20181122, end: 20181122
  11. DAFALGAN [Interacting]
     Active Substance: ACETAMINOPHEN
     Route: 048
     Dates: start: 20181129, end: 20181201
  12. TRAMAL [Interacting]
     Active Substance: TRAMADOL
     Dosage: MAX 4X/D ; AS NECESSARY
     Route: 048
     Dates: start: 20181122, end: 20181128
  13. EPHEDRINE. [Concomitant]
     Active Substance: EPHEDRINE
     Route: 065
     Dates: start: 20181122, end: 20181122
  14. CATAPRESAN [Concomitant]
     Active Substance: CLONIDINE
     Route: 065
     Dates: start: 20181122, end: 20181122
  15. PASPERTIN [Concomitant]
     Route: 065
     Dates: end: 20181128
  16. MORPHINE [Interacting]
     Active Substance: MORPHINE
     Dosage: IN TOTAL
     Route: 042
     Dates: start: 20181122, end: 20181122
  17. MORPHINE [Interacting]
     Active Substance: MORPHINE
     Route: 058
     Dates: start: 20181122, end: 20181124
  18. CLEXANE [Concomitant]
     Active Substance: ENOXAPARIN SODIUM
     Route: 065
     Dates: end: 20181128
  19. ONDANSETRON [Concomitant]
     Active Substance: ONDANSETRON
     Dosage: AS NECESSARY
     Route: 065
     Dates: end: 20181128
  20. PHENYLEPHRINE [Concomitant]
     Active Substance: PHENYLEPHRINE\PHENYLEPHRINE HYDROCHLORIDE
     Route: 065
     Dates: start: 20181122, end: 20181122
  21. NEXIUM [Concomitant]
     Active Substance: ESOMEPRAZOLE MAGNESIUM
     Route: 065
     Dates: end: 20181128
  22. SUFENTA [Suspect]
     Active Substance: SUFENTANIL CITRATE
     Dosage: IN TOTAL
     Route: 042
     Dates: start: 20181122, end: 20181122
  23. ROBINUL-NEOSTIGMINE [Concomitant]
     Active Substance: GLYCOPYRROLATE\NEOSTIGMINE
     Route: 065
     Dates: start: 20181122
  24. IRFEN [Suspect]
     Active Substance: IBUPROFEN
     Dosage: 1200 MILLIGRAM DAILY;
     Route: 048
     Dates: end: 20181128
  25. PROPOFOL. [Suspect]
     Active Substance: PROPOFOL
     Dosage: IN TOTAL
     Route: 042
     Dates: start: 20181122, end: 20181122
  26. DROPERIDOL. [Concomitant]
     Active Substance: DROPERIDOL
     Route: 065
     Dates: start: 20181122, end: 20181122
  27. EUTHYROX [Concomitant]
     Active Substance: LEVOTHYROXINE SODIUM
     Dosage: LONG-TERM TREATMENT
     Route: 065
  28. TEMESTA [Concomitant]
     Dosage: AS NECESSARY
     Route: 065
     Dates: end: 20181128
  29. NASONEX [Concomitant]
     Active Substance: MOMETASONE FUROATE
     Dosage: IN TOTAL
     Route: 065
     Dates: start: 20181129, end: 20181201

REACTIONS (1)
  - Hypoacusis [Not Recovered/Not Resolved]

NARRATIVE: CASE EVENT DATE: 20181128
